FAERS Safety Report 7361129-1 (Version None)
Quarter: 2011Q1

REPORT INFORMATION
  Report Type: 
  Country: None (occurrence: None)
  Receive Date: 20110315
  Receipt Date: 20110315
  Transmission Date: 20110831
  Serious: Yes (Other)
  Sender: FDA-Public Use
  Company Number: None

PATIENT
  Sex: Female
  Weight: 73.4827 kg

DRUGS (1)
  1. LIOTHYRONINE SODIUM [Suspect]
     Indication: AUTOIMMUNE THYROIDITIS
     Dates: start: 20101110, end: 20101210

REACTIONS (3)
  - PRODUCT SUBSTITUTION ISSUE [None]
  - LETHARGY [None]
  - PALPITATIONS [None]
